FAERS Safety Report 18182283 (Version 1)
Quarter: 2020Q3

REPORT INFORMATION
  Report Type: Report from Study
  Country: US (occurrence: US)
  Receive Date: 20200821
  Receipt Date: 20200821
  Transmission Date: 20201103
  Serious: Yes (Other)
  Sender: FDA-Public Use
  Company Number: US-BRISTOL-MYERS SQUIBB COMPANY-BMS-2020-062670

PATIENT
  Sex: Female

DRUGS (4)
  1. TYLENOL [Concomitant]
     Active Substance: ACETAMINOPHEN
     Indication: PRODUCT USED FOR UNKNOWN INDICATION
     Dosage: UNK
     Route: 065
  2. LASIX [Suspect]
     Active Substance: FUROSEMIDE
     Indication: PRODUCT USED FOR UNKNOWN INDICATION
     Dosage: UNK
     Route: 065
  3. CLARITONE [Concomitant]
     Active Substance: BENZALKONIUM CHLORIDE
     Indication: PRODUCT USED FOR UNKNOWN INDICATION
     Dosage: UNK
     Route: 065
  4. APIXABAN [Suspect]
     Active Substance: APIXABAN
     Indication: THROMBOSIS PROPHYLAXIS
     Dosage: UNK, BID
     Route: 048
     Dates: start: 201912

REACTIONS (11)
  - Peripheral swelling [Unknown]
  - Impaired healing [Unknown]
  - Wound secretion [Unknown]
  - Skin laceration [Unknown]
  - Haemorrhage [Unknown]
  - Lower limb fracture [Unknown]
  - Pollakiuria [Unknown]
  - Fatigue [Unknown]
  - Joint swelling [Unknown]
  - Contusion [Unknown]
  - Prescribed overdose [Unknown]
